FAERS Safety Report 4273508-X (Version None)
Quarter: 2004Q1

REPORT INFORMATION
  Report Type: 
  Country: None (occurrence: None)
  Receive Date: 20040119
  Receipt Date: 20040107
  Transmission Date: 20041129
  Serious: Yes (Death, Hospitalization)
  Sender: FDA-Public Use
  Company Number: GB-GLAXOSMITHKLINE-B0319734A

PATIENT
  Age: 69 Year
  Sex: Male

DRUGS (15)
  1. PAROXETINE [Suspect]
     Indication: DEPRESSION
     Route: 048
     Dates: start: 20000126
  2. ARCOXIA [Concomitant]
     Indication: PAIN IN EXTREMITY
     Dosage: 60MG TWICE PER DAY
     Route: 048
     Dates: start: 20031118, end: 20031213
  3. CELEBREX [Concomitant]
     Indication: PAIN
     Route: 048
     Dates: start: 20030827, end: 20031213
  4. DICLOFENAC SODIUM [Concomitant]
     Indication: PAIN
     Dosage: 50MG THREE TIMES PER DAY
     Route: 048
     Dates: start: 19980529, end: 20031118
  5. ASASANTIN RETARD [Concomitant]
     Indication: CARDIOVASCULAR DISORDER
     Route: 048
     Dates: start: 19990917, end: 20031213
  6. OMEPRAZOLE [Concomitant]
     Indication: PROPHYLAXIS
     Dates: start: 19930302, end: 20031213
  7. ACETAMINOPHEN [Concomitant]
     Indication: PAIN
     Dosage: 1G FOUR TIMES PER DAY
     Dates: start: 19991110
  8. PHENYTOIN [Concomitant]
     Dosage: 100MG THREE TIMES PER DAY
     Dates: start: 20021203
  9. RAMIPRIL [Concomitant]
     Indication: MYOCARDIAL INFARCTION
     Dosage: 10MG PER DAY
     Dates: start: 20010425
  10. TEMAZEPAM [Concomitant]
     Indication: MYOCARDIAL INFARCTION
     Dates: start: 19890208
  11. XATRAL [Concomitant]
     Dosage: 10MG PER DAY
     Dates: start: 20021203
  12. DOMPERIDONE [Concomitant]
     Dosage: 10MG THREE TIMES PER DAY
     Dates: start: 19971215, end: 20031213
  13. ANGITIL [Concomitant]
     Indication: ANGINA PECTORIS
     Dosage: 300MG PER DAY
     Route: 048
     Dates: start: 19980723
  14. ISOSORBIDE [Concomitant]
     Indication: ANGINA PECTORIS
     Dates: start: 19960820
  15. CO-CODAMOL [Concomitant]
     Indication: PAIN
     Dates: start: 20021122, end: 20031213

REACTIONS (1)
  - GASTROINTESTINAL HAEMORRHAGE [None]
